FAERS Safety Report 7386590-8 (Version None)
Quarter: 2011Q1

REPORT INFORMATION
  Report Type: 
  Country: None (occurrence: None)
  Receive Date: 20110331
  Receipt Date: 20110322
  Transmission Date: 20110831
  Serious: Yes (Other)
  Sender: FDA-Public Use
  Company Number: US-ROCHE-767035

PATIENT
  Age: 65 Year
  Sex: Female
  Weight: 58.9 kg

DRUGS (3)
  1. VALIUM [Suspect]
     Route: 048
  2. LYRICA [Suspect]
     Route: 048
     Dates: start: 20110201
  3. VICODIN [Concomitant]

REACTIONS (7)
  - DIZZINESS [None]
  - DEPRESSION [None]
  - CONFUSIONAL STATE [None]
  - MALAISE [None]
  - SOMNOLENCE [None]
  - MENTAL IMPAIRMENT [None]
  - DECREASED APPETITE [None]
